FAERS Safety Report 7051421-2 (Version None)
Quarter: 2010Q4

REPORT INFORMATION
  Report Type: 
  Country: None (occurrence: None)
  Receive Date: 20101014
  Receipt Date: 20100930
  Transmission Date: 20110411
  Serious: Yes (Other)
  Sender: FDA-Public Use
  Company Number: DSJ-2010-12079

PATIENT
  Age: 72 Year
  Sex: Female

DRUGS (4)
  1. AMLODIPINE BESYLATE AND OLMESARTAN MEDOXOMIL [Suspect]
     Indication: HYPERTENSION
     Dosage: 40/5 MG (1 IN 1 D), PER ORAL; 40/10 MG (1 IN 1 D), PER ORAL
     Route: 048
     Dates: start: 20100601, end: 20100801
  2. AMLODIPINE BESYLATE AND OLMESARTAN MEDOXOMIL [Suspect]
     Indication: HYPERTENSION
     Dosage: 40/5 MG (1 IN 1 D), PER ORAL; 40/10 MG (1 IN 1 D), PER ORAL
     Route: 048
     Dates: start: 20100801
  3. AMIODARONE [Concomitant]
  4. PREGABALIN [Concomitant]

REACTIONS (2)
  - HYPERTENSION [None]
  - SURGERY [None]
